FAERS Safety Report 9901206 (Version 1)
Quarter: 2014Q1

REPORT INFORMATION
  Report Type: Not Available
  Country: TW (occurrence: TW)
  Receive Date: 20140217
  Receipt Date: 20140217
  Transmission Date: 20141002
  Serious: Yes (Death)
  Sender: FDA-Public Use
  Company Number: TW-ASTELLAS-2014JP001268

PATIENT
  Age: 32 Year
  Sex: Female

DRUGS (1)
  1. TACROLIMUS [Suspect]
     Indication: HEART TRANSPLANT
     Route: 065

REACTIONS (1)
  - Osmotic demyelination syndrome [Fatal]
